FAERS Safety Report 5873632-1 (Version None)
Quarter: 2008Q3

REPORT INFORMATION
  Report Type: 
  Country: None (occurrence: None)
  Receive Date: 20080908
  Receipt Date: 20080829
  Transmission Date: 20090109
  Serious: Yes (Hospitalization)
  Sender: FDA-Public Use
  Company Number: A0744067A

PATIENT
  Age: 70 Year
  Sex: Male
  Weight: 88.6 kg

DRUGS (6)
  1. AVANDIA [Suspect]
     Indication: TYPE 2 DIABETES MELLITUS
     Dosage: 4MG TWICE PER DAY
     Route: 048
     Dates: start: 20030303, end: 20070101
  2. FLAX SEED OIL [Concomitant]
  3. VITAMIN B COMPLEX CAP [Concomitant]
  4. GLUCOTROL XL [Concomitant]
     Dosage: 2.5MG TWICE PER DAY
  5. GLUCOPHAGE [Concomitant]
     Dosage: 500MG TWICE PER DAY
  6. ARMOUR THYROID [Concomitant]

REACTIONS (5)
  - ATRIAL FIBRILLATION [None]
  - CORONARY ARTERY OCCLUSION [None]
  - HYPOTENSION [None]
  - MYOCARDIAL INFARCTION [None]
  - MYOCARDIAL ISCHAEMIA [None]
